FAERS Safety Report 21474346 (Version 2)
Quarter: 2022Q4

REPORT INFORMATION
  Report Type: Spontaneous
  Country: US (occurrence: US)
  Receive Date: 20221018
  Receipt Date: 20221207
  Transmission Date: 20230113
  Serious: No
  Sender: FDA-Public Use
  Company Number: US-MYLANLABS-2022M1112436

PATIENT
  Age: 62 Year
  Sex: Female

DRUGS (1)
  1. XANAX [Suspect]
     Active Substance: ALPRAZOLAM
     Indication: Myoclonus
     Dosage: 0.25 MILLIGRAM
     Route: 065

REACTIONS (8)
  - Feeling abnormal [Unknown]
  - Nervousness [Unknown]
  - Tremor [Unknown]
  - Withdrawal syndrome [Unknown]
  - Fear [Unknown]
  - Discomfort [Unknown]
  - Product taste abnormal [Unknown]
  - Off label use [Unknown]
